FAERS Safety Report 7455214-3 (Version None)
Quarter: 2011Q2

REPORT INFORMATION
  Report Type: 
  Country: None (occurrence: None)
  Receive Date: 20110503
  Receipt Date: 20110420
  Transmission Date: 20111010
  Serious: Yes (Hospitalization)
  Sender: FDA-Public Use
  Company Number: CA-JNJFOC-20110409360

PATIENT
  Sex: Male
  Weight: 100 kg

DRUGS (10)
  1. PANTOPRAZOLE [Concomitant]
  2. HYZAAR [Concomitant]
     Dosage: 100/25 PO DAILY
     Route: 048
  3. MAXIDEX (EYE DROPS) [Concomitant]
     Dosage: 1 GTT TO EACH EYE TID
     Route: 047
  4. REMICADE [Suspect]
     Indication: ANKYLOSING SPONDYLITIS
     Route: 042
  5. ATENOLOL [Concomitant]
     Dosage: 2 TABS IN AM AND 1 TAB IN PM
     Route: 048
  6. METHOTREXATE [Concomitant]
     Route: 048
  7. FOLIC ACID [Concomitant]
     Route: 048
  8. REMICADE [Suspect]
     Route: 042
  9. OXYCET [Concomitant]
     Dosage: 5/326 PO PRN
     Route: 048
  10. APO-KETOROLAC [Concomitant]
     Dosage: 1 GTT TO EACH EYE TID
     Route: 047

REACTIONS (1)
  - PANCREATITIS [None]
